FAERS Safety Report 4640477-X (Version None)
Quarter: 2005Q2

REPORT INFORMATION
  Report Type: 
  Country: None (occurrence: None)
  Receive Date: 20050419
  Receipt Date: 20050408
  Transmission Date: 20051028
  Serious: Yes (Other)
  Sender: FDA-Public Use
  Company Number: KII-2005-0015966

PATIENT
  Age: 50 Year
  Sex: Female

DRUGS (1)
  1. OXYCODONE HCL [Suspect]
     Indication: PAIN
     Dosage: SEE TEXT, ORAL
     Route: 048

REACTIONS (4)
  - BACK PAIN [None]
  - COMA [None]
  - INADEQUATE ANALGESIA [None]
  - OVERDOSE [None]
